FAERS Safety Report 5574750-8 (Version None)
Quarter: 2007Q4

REPORT INFORMATION
  Report Type: 
  Country: None (occurrence: None)
  Receive Date: 20071226
  Receipt Date: 20071226
  Transmission Date: 20080405
  Serious: Yes (Hospitalization)
  Sender: FDA-Public Use
  Company Number: None

PATIENT
  Age: 64 Year
  Sex: Male
  Weight: 88 kg

DRUGS (1)
  1. SORAFENIB 200MG BAYER [Suspect]
     Indication: METASTATIC RENAL CELL CARCINOMA
     Dosage: 600MG BID PO
     Route: 048
     Dates: start: 20070928, end: 20071218

REACTIONS (9)
  - BACK PAIN [None]
  - MALIGNANT NEOPLASM PROGRESSION [None]
  - METASTASES TO NERVOUS SYSTEM [None]
  - NEUROLOGICAL SYMPTOM [None]
  - PERONEAL NERVE PALSY [None]
  - RENAL CELL CARCINOMA STAGE UNSPECIFIED [None]
  - SPINAL CORD COMPRESSION [None]
  - SPINAL CORD DISORDER [None]
  - URINARY INCONTINENCE [None]
